FAERS Safety Report 5226352-0 (Version None)
Quarter: 2007Q1

REPORT INFORMATION
  Report Type: 
  Country: None (occurrence: None)
  Receive Date: 20070129
  Receipt Date: 20070111
  Transmission Date: 20070707
  Serious: Yes (Hospitalization)
  Sender: FDA-Public Use
  Company Number: CAR-2007-001

PATIENT
  Age: 47 Year
  Sex: Male

DRUGS (1)
  1. CARAFATE [Suspect]
     Indication: DRUG ADMINISTRATION ERROR
     Dosage: UNKNOWN IV DOSE
     Route: 042
     Dates: start: 20061217

REACTIONS (2)
  - BLOOD ALUMINIUM INCREASED [None]
  - INCORRECT ROUTE OF DRUG ADMINISTRATION [None]
